FAERS Safety Report 6677626-8 (Version None)
Quarter: 2010Q2

REPORT INFORMATION
  Report Type: 
  Country: None (occurrence: None)
  Receive Date: 20100412
  Receipt Date: 20100308
  Transmission Date: 20101027
  Serious: No
  Sender: FDA-Public Use
  Company Number: CA-ALEXION-A201000261

PATIENT
  Sex: Female

DRUGS (9)
  1. SOLIRIS [Suspect]
     Indication: PAROXYSMAL NOCTURNAL HAEMOGLOBINURIA
     Dosage: 600 MG, QW
     Route: 042
     Dates: start: 20091020, end: 20091110
  2. SOLIRIS [Suspect]
     Dosage: 900 MG, Q2W
     Route: 042
     Dates: start: 20091117
  3. PREDNISOLONE [Suspect]
     Indication: CROHN'S DISEASE
     Dosage: UNK
  4. RAMIPRIL [Concomitant]
     Indication: BLOOD PRESSURE
     Dosage: UNK
     Route: 048
  5. NITRO                              /00003201/ [Concomitant]
     Dosage: UNK
     Route: 062
  6. BISOPROLOL [Concomitant]
     Indication: BLOOD PRESSURE
     Dosage: UNK
     Route: 048
  7. PANTOLOC                           /01263201/ [Concomitant]
     Indication: GASTROOESOPHAGEAL REFLUX DISEASE
     Dosage: UNK
     Route: 048
  8. PENTASA [Concomitant]
     Indication: CROHN'S DISEASE
     Dosage: UNK
     Route: 048
  9. VITAMIN B12                        /00056201/ [Concomitant]
     Dosage: UNK
     Route: 048

REACTIONS (3)
  - ARTHRALGIA [None]
  - HAEMOGLOBIN DECREASED [None]
  - OEDEMA PERIPHERAL [None]
